FAERS Safety Report 9681643 (Version 1)
Quarter: 2013Q4

REPORT INFORMATION
  Report Type: Spontaneous
  Country: US (occurrence: US)
  Receive Date: 20131111
  Receipt Date: 20131111
  Transmission Date: 20140711
  Serious: Yes (Other)
  Sender: FDA-Public Use
  Company Number: CHPA2013US016793

PATIENT
  Age: 70 Year
  Sex: Female

DRUGS (3)
  1. EX-LAX MAX STR LAX PILLS SENNA [Suspect]
     Indication: CONSTIPATION
     Dosage: 3 TO 4 DF, UNK
     Route: 048
     Dates: end: 201310
  2. EX-LAX REG STR CHOCOLATED LAX PCS SEN [Suspect]
     Indication: CONSTIPATION
     Dosage: 2 DF, ONCE/SINGLE
     Route: 048
  3. TETANUS VACCINE [Suspect]

REACTIONS (6)
  - Neoplasm [Recovered/Resolved]
  - Allergy to vaccine [Not Recovered/Not Resolved]
  - Constipation [Not Recovered/Not Resolved]
  - Abdominal discomfort [Recovered/Resolved]
  - Incorrect dose administered [Unknown]
  - Drug ineffective [Unknown]
